FAERS Safety Report 8612991-3 (Version None)
Quarter: 2012Q3

REPORT INFORMATION
  Report Type: 
  Country: None (occurrence: None)
  Receive Date: 20120822
  Receipt Date: 20120816
  Transmission Date: 20120928
  Serious: Yes (Other)
  Sender: FDA-Public Use
  Company Number: AT-PFIZER INC-2012187997

PATIENT
  Age: 46 Year
  Sex: Female

DRUGS (1)
  1. MEDROXYPROGESTERONE ACETATE [Suspect]
     Dosage: UNK

REACTIONS (7)
  - INJECTION SITE CYST [None]
  - INJECTION SITE PARAESTHESIA [None]
  - INTERVERTEBRAL DISC DEGENERATION [None]
  - DERMAL CYST [None]
  - DRUG ADMINISTERED AT INAPPROPRIATE SITE [None]
  - INJECTION SITE ATROPHY [None]
  - GOITRE [None]
